FAERS Safety Report 4360160-8 (Version None)
Quarter: 2004Q2

REPORT INFORMATION
  Report Type: 
  Country: None (occurrence: None)
  Receive Date: 20040518
  Receipt Date: 20040518
  Transmission Date: 20050107
  Serious: No
  Sender: FDA-Public Use
  Company Number: None

PATIENT
  Age: 62 Year
  Sex: Female
  Weight: 70.3075 kg

DRUGS (1)
  1. BEXTRA [Suspect]
     Indication: OSTEOARTHRITIS
     Dosage: 10 MG - 2 TABLETS DAILY (REDUCED TO 1 TABLET DAILY)

REACTIONS (6)
  - ABDOMINAL PAIN [None]
  - BACTERIA URINE [None]
  - BLOOD UREA NITROGEN/CREATININE RATIO INCREASED [None]
  - CHEST PAIN [None]
  - URINARY TRACT INFECTION [None]
  - WHITE BLOOD CELL COUNT DECREASED [None]
